FAERS Safety Report 24613845 (Version 2)
Quarter: 2024Q4

REPORT INFORMATION
  Report Type: Spontaneous
  Country: US (occurrence: US)
  Receive Date: 20241113
  Receipt Date: 20241126
  Transmission Date: 20250115
  Serious: Yes (Hospitalization)
  Sender: TEVA
  Company Number: US-TEVA-VS-3262456

PATIENT
  Age: 45 Year
  Sex: Male

DRUGS (1)
  1. CEPHALEXIN [Suspect]
     Active Substance: CEPHALEXIN
     Indication: Evidence based treatment
     Dosage: CEPHALEXIN
     Route: 065

REACTIONS (1)
  - Dermatitis atopic [Recovering/Resolving]
